FAERS Safety Report 8086655 (Version 4)
Quarter: 2014Q2

REPORT INFORMATION
  Report Type: Spontaneous
  Country: US (occurrence: US)
  Receive Date: 20110811
  Receipt Date: 20140606
  Transmission Date: 20141212
  Serious: Yes (Hospitalization)
  Sender: FDA-Public Use
  Company Number: US-GLAXOSMITHKLINE-A0940280A

PATIENT
  Age: 76 Year
  Sex: Male
  Weight: 136.4 kg

DRUGS (1)
  1. AVANDIA [Suspect]
     Indication: DIABETES MELLITUS
     Dosage: 4MG PER DAY
     Route: 048
     Dates: start: 20040421, end: 200801

REACTIONS (6)
  - Myocardial infarction [Not Recovered/Not Resolved]
  - Syncope [Unknown]
  - Coronary artery disease [Unknown]
  - Heart rate irregular [Unknown]
  - Dizziness [Unknown]
  - Cardiac failure congestive [Unknown]
